FAERS Safety Report 17709679 (Version 3)
Quarter: 2020Q2

REPORT INFORMATION
  Report Type: Spontaneous
  Country: ES (occurrence: ES)
  Receive Date: 20200427
  Receipt Date: 20200522
  Transmission Date: 20200714
  Serious: Yes (Other)
  Sender: FDA-Public Use
  Company Number: ES-CELLTRION INC.-2020ES021731

PATIENT

DRUGS (14)
  1. MYCOPHENOLATE MOFETIL. [Interacting]
     Active Substance: MYCOPHENOLATE MOFETIL
     Indication: IMMUNOSUPPRESSANT DRUG THERAPY
     Route: 065
  2. AZATHIOPRINE. [Interacting]
     Active Substance: AZATHIOPRINE
     Indication: IMMUNOSUPPRESSANT DRUG THERAPY
     Route: 065
  3. ALPROSTADIL. [Concomitant]
     Active Substance: ALPROSTADIL
     Indication: SKIN ULCER
     Dosage: UNK
     Route: 065
  4. ALPROSTADIL. [Concomitant]
     Active Substance: ALPROSTADIL
     Indication: RAYNAUD^S PHENOMENON
     Dosage: UNK
     Route: 065
  5. BOSENTAN. [Interacting]
     Active Substance: BOSENTAN
     Indication: SKIN ULCER
     Dosage: UNK
     Route: 065
  6. OPSUMIT [Concomitant]
     Active Substance: MACITENTAN
     Indication: SKIN ULCER
     Dosage: UNK
     Route: 065
  7. RITUXIMAB (UNKNOWN) [Suspect]
     Active Substance: RITUXIMAB
     Indication: IMMUNOSUPPRESSANT DRUG THERAPY
     Dosage: PERFUSION
     Route: 065
  8. MYCOPHENOLATE MOFETIL. [Interacting]
     Active Substance: MYCOPHENOLATE MOFETIL
     Indication: MIXED CONNECTIVE TISSUE DISEASE
  9. MACITENTAN [Suspect]
     Active Substance: MACITENTAN
     Indication: SKIN ULCER
     Route: 065
  10. BOSENTAN. [Interacting]
     Active Substance: BOSENTAN
     Indication: MIXED CONNECTIVE TISSUE DISEASE
     Dosage: UNK
     Route: 048
  11. TACROLIMUS. [Interacting]
     Active Substance: TACROLIMUS
     Indication: MIXED CONNECTIVE TISSUE DISEASE
     Dosage: 2.5 TO 3.0 MG PER DAY IN TWO DIVIDED DOSES
     Route: 065
  12. CYCLOPHOSPHAMIDE. [Concomitant]
     Active Substance: CYCLOPHOSPHAMIDE
     Dosage: ROUTE: (BOLUS)
     Route: 050
  13. RITUXIMAB (UNKNOWN) [Interacting]
     Active Substance: RITUXIMAB
     Indication: MIXED CONNECTIVE TISSUE DISEASE
     Dosage: UNK
     Route: 065
  14. AZATHIOPRINE. [Interacting]
     Active Substance: AZATHIOPRINE
     Indication: MIXED CONNECTIVE TISSUE DISEASE

REACTIONS (6)
  - Off label use [Unknown]
  - Product use in unapproved indication [Unknown]
  - Hypersensitivity [Unknown]
  - Drug interaction [Unknown]
  - Enterocolitis [Unknown]
  - Haematotoxicity [Unknown]
